FAERS Safety Report 5359024-2 (Version None)
Quarter: 2007Q2

REPORT INFORMATION
  Report Type: 
  Country: None (occurrence: None)
  Receive Date: 20070615
  Receipt Date: 20070612
  Transmission Date: 20071010
  Serious: Yes (Hospitalization, Disabling, Other)
  Sender: FDA-Public Use
  Company Number: US-MERCK-0506USA02139

PATIENT
  Age: 65 Year
  Sex: Female
  Weight: 70 kg

DRUGS (7)
  1. FOSAMAX [Suspect]
     Indication: OSTEOPOROSIS
     Route: 048
     Dates: start: 20030602, end: 20040101
  2. DILTIAZEM HYDROCHLORIDE [Concomitant]
     Route: 048
  3. DIOVAN HCT [Concomitant]
     Route: 048
  4. ZOCOR [Concomitant]
     Route: 048
  5. AMITRIPTYLINE HYDROCHLORIDE [Concomitant]
     Route: 048
  6. ACIPHEX [Concomitant]
     Route: 048
  7. NEURONTIN [Concomitant]
     Route: 048

REACTIONS (14)
  - ACUTE SINUSITIS [None]
  - ANXIETY [None]
  - APHTHOUS STOMATITIS [None]
  - CARPAL TUNNEL SYNDROME [None]
  - FATIGUE [None]
  - GASTROOESOPHAGEAL REFLUX DISEASE [None]
  - MAMMOGRAM ABNORMAL [None]
  - OSTEOMYELITIS [None]
  - OSTEONECROSIS [None]
  - PAIN [None]
  - PHLEBITIS [None]
  - RHEUMATOID ARTHRITIS [None]
  - SINUSITIS [None]
  - SYNCOPE [None]
